FAERS Safety Report 4912030-1 (Version None)
Quarter: 2006Q1

REPORT INFORMATION
  Report Type: 
  Country: None (occurrence: None)
  Receive Date: 20060215
  Receipt Date: 20051125
  Transmission Date: 20060701
  Serious: Yes (Hospitalization)
  Sender: FDA-Public Use
  Company Number: 2005AP06119

PATIENT
  Age: 18944 Day
  Sex: Female

DRUGS (4)
  1. IRESSA [Suspect]
     Indication: NON-SMALL CELL LUNG CANCER
     Route: 048
     Dates: start: 20050726, end: 20051018
  2. DOCETAXEL [Concomitant]
     Indication: NON-SMALL CELL LUNG CANCER
     Dates: start: 20051021
  3. CETIRIZIN [Concomitant]
     Indication: RASH PRURITIC
     Dates: start: 20050927
  4. DICLOCIL [Concomitant]
     Indication: URINARY TRACT INFECTION
     Route: 048
     Dates: start: 20051003, end: 20051001

REACTIONS (1)
  - FEBRILE NEUTROPENIA [None]
